FAERS Safety Report 8971153 (Version 2)
Quarter: 2012Q4

REPORT INFORMATION
  Report Type: 
  Country: JP (occurrence: JP)
  Receive Date: 20121218
  Receipt Date: 20121226
  Transmission Date: 20130627
  Serious: Yes (Other)
  Sender: FDA-Public Use
  Company Number: JP-PFIZER INC-2012318422

PATIENT
  Age: 54 Year
  Sex: Male

DRUGS (5)
  1. LIPITOR [Suspect]
     Indication: DYSLIPIDAEMIA
     Dosage: 2.5 mg, alternate day
     Route: 048
  2. MICARDIS [Concomitant]
     Dosage: UNK
  3. OMEPRAL [Concomitant]
     Dosage: UNK
  4. ALLOPURINOL [Concomitant]
     Dosage: UNK
  5. CARDENALIN [Concomitant]
     Dosage: UNK

REACTIONS (2)
  - Muscle rupture [Unknown]
  - Intentional drug misuse [Unknown]
